FAERS Safety Report 7801909-9 (Version None)
Quarter: 2011Q4

REPORT INFORMATION
  Report Type: 
  Country: None (occurrence: None)
  Receive Date: 20111007
  Receipt Date: 20111003
  Transmission Date: 20120403
  Serious: Yes (Other)
  Sender: FDA-Public Use
  Company Number: US-PFIZER INC-2011216528

PATIENT
  Sex: Female
  Weight: 63.492 kg

DRUGS (5)
  1. DIAZEPAM [Concomitant]
     Indication: HYPOAESTHESIA
     Dosage: UNK
  2. DILANTIN [Suspect]
     Indication: CONVULSION
     Dosage: 100 MG, 4X/DAY
     Route: 048
     Dates: start: 19910101
  3. PERCOCET [Concomitant]
     Dosage: UNK
  4. DICLOFENAC [Concomitant]
     Indication: PAIN
     Dosage: UNK, 2X\DAY
  5. PROVENTIL GENTLEHALER [Concomitant]
     Indication: CHRONIC OBSTRUCTIVE PULMONARY DISEASE
     Dosage: UNK

REACTIONS (1)
  - ANTICONVULSANT DRUG LEVEL DECREASED [None]
